FAERS Safety Report 10751434 (Version 1)
Quarter: 2015Q1

REPORT INFORMATION
  Report Type: Spontaneous
  Country: IT (occurrence: None)
  Receive Date: 20150128
  Receipt Date: 20150128
  Transmission Date: 20150721
  Serious: No
  Sender: FDA-Public Use
  Company Number: IT2015K0096SPO

PATIENT
  Age: 83 Year
  Sex: Female

DRUGS (6)
  1. FRISIUM [Suspect]
     Active Substance: CLOBAZAM
     Route: 048
     Dates: start: 20120101, end: 20150113
  2. KCI RETARD (POTASSIUM CHLORIDE) [Concomitant]
  3. CARDIOASPIRIN (ACETYLSALICYLIC ACID) [Concomitant]
     Active Substance: ASPIRIN
  4. LANSOPRAZOLE. [Suspect]
     Active Substance: LANSOPRAZOLE
     Route: 048
     Dates: start: 20110101, end: 20150113
  5. RAMPRIL (RAMIPRIL) [Concomitant]
  6. DIAMOX (ACETAZOLAMIDE) [Concomitant]

REACTIONS (3)
  - Drug interaction [None]
  - Confusional state [None]
  - Hallucination [None]

NARRATIVE: CASE EVENT DATE: 20150111
